FAERS Safety Report 5241447-3 (Version None)
Quarter: 2007Q1

REPORT INFORMATION
  Report Type: 
  Country: None (occurrence: None)
  Receive Date: 20070220
  Receipt Date: 20070206
  Transmission Date: 20070707
  Serious: Yes (Hospitalization)
  Sender: FDA-Public Use
  Company Number: FR-AVENTIS-200710469FR

PATIENT
  Age: 42 Year
  Sex: Male

DRUGS (5)
  1. TERALITHE [Suspect]
     Route: 048
     Dates: end: 20070101
  2. TERCIAN                            /00759301/ [Suspect]
     Indication: AGITATION
     Route: 048
     Dates: start: 20070102
  3. LOVENOX [Suspect]
     Indication: THROMBOSIS PROPHYLAXIS
     Route: 058
     Dates: start: 20070102
  4. TRANXENE [Suspect]
     Route: 048
  5. TRANXENE [Suspect]
     Indication: AGITATION
     Route: 048

REACTIONS (13)
  - AGITATION [None]
  - ANTIPSYCHOTIC DRUG LEVEL INCREASED [None]
  - ARRHYTHMIA SUPRAVENTRICULAR [None]
  - ATRIOVENTRICULAR BLOCK [None]
  - AZOTAEMIA [None]
  - BLOOD CREATININE INCREASED [None]
  - BRADYCARDIA [None]
  - DEHYDRATION [None]
  - ELECTROCARDIOGRAM PR PROLONGATION [None]
  - INTENTIONAL OVERDOSE [None]
  - POLYURIA [None]
  - RENAL FAILURE [None]
  - RHABDOMYOLYSIS [None]
